FAERS Safety Report 7183390-9 (Version None)
Quarter: 2010Q4

REPORT INFORMATION
  Report Type: 
  Country: None (occurrence: None)
  Receive Date: 20101220
  Receipt Date: 20101220
  Transmission Date: 20110411
  Serious: Yes (Hospitalization)
  Sender: FDA-Public Use
  Company Number: None

PATIENT
  Age: 68 Year
  Sex: Male

DRUGS (7)
  1. COUMADIN [Suspect]
     Indication: AORTIC VALVE REPLACEMENT
     Dosage: 5MG/2.5 MWF/EOD PO CHRONIC W/RECENT D/C
     Route: 048
  2. LOVENOX [Suspect]
     Indication: AORTIC VALVE REPLACEMENT
     Dosage: 95 MG BID SQ RECENT
     Route: 058
  3. AMBIEN [Concomitant]
  4. VIT C [Concomitant]
  5. FLONASE [Concomitant]
  6. APAP TAB [Concomitant]
  7. PRILOSEC [Concomitant]

REACTIONS (5)
  - COLON CANCER [None]
  - GASTROINTESTINAL HAEMORRHAGE [None]
  - HEPATIC FUNCTION ABNORMAL [None]
  - POSTOPERATIVE ILEUS [None]
  - PRESYNCOPE [None]
